FAERS Safety Report 17592710 (Version 6)
Quarter: 2025Q2

REPORT INFORMATION
  Report Type: Spontaneous
  Country: PL (occurrence: PL)
  Receive Date: 20200327
  Receipt Date: 20250605
  Transmission Date: 20250717
  Serious: Yes (Hospitalization, Other)
  Sender: MYLAN
  Company Number: PL-ADAMED-00102596

PATIENT
  Age: 52 Year
  Sex: Female

DRUGS (5)
  1. METOPROLOL [Interacting]
     Active Substance: METOPROLOL
     Indication: Sinus tachycardia
     Dosage: LONG-TERM THERAPY; CONTROLLED-RELEASE DOSE,100MG/D
  2. LANSOPRAZOLE [Interacting]
     Active Substance: LANSOPRAZOLE
     Indication: Gastrooesophageal reflux disease
     Dosage: 15 MILLIGRAM, QD
  3. DULOXETINE [Interacting]
     Active Substance: DULOXETINE
     Indication: Anxiety disorder
     Dosage: 30 MILLIGRAM, QD
  4. DULOXETINE [Interacting]
     Active Substance: DULOXETINE
     Indication: Generalised anxiety disorder
     Route: 065
  5. METOCLOPRAMIDE [Interacting]
     Active Substance: METOCLOPRAMIDE
     Indication: Gastrooesophageal reflux disease
     Dosage: 30 MILLIGRAM, QD

REACTIONS (11)
  - Loss of consciousness [Unknown]
  - Drug interaction [Unknown]
  - Syncope [Unknown]
  - Bradycardia [Unknown]
  - Dyspepsia [Unknown]
  - Abdominal pain upper [Unknown]
  - Reflux gastritis [Unknown]
  - Illness [Unknown]
  - Sinus bradycardia [Unknown]
  - Presyncope [Unknown]
  - Off label use [Unknown]
